FAERS Safety Report 13782340 (Version 1)
Quarter: 2017Q3

REPORT INFORMATION
  Report Type: Spontaneous
  Country: US (occurrence: US)
  Receive Date: 20170724
  Receipt Date: 20170724
  Transmission Date: 20171127
  Serious: No
  Sender: FDA-Public Use
  Company Number: None

PATIENT

DRUGS (1)
  1. AMOXICILLIN 400MG/5ML SUS WEST WEST-WARD GENERIC DISPENED ML [Suspect]
     Active Substance: AMOXICILLIN

REACTIONS (3)
  - Inappropriate schedule of drug administration [None]
  - Drug dispensing error [None]
  - Incorrect dose administered [None]
